FAERS Safety Report 8241468-2 (Version None)
Quarter: 2012Q1

REPORT INFORMATION
  Report Type: 
  Country: None (occurrence: None)
  Receive Date: 20120328
  Receipt Date: 20120321
  Transmission Date: 20120608
  Serious: Yes (Death)
  Sender: FDA-Public Use
  Company Number: US-ABBOTT-12P-163-0902509-00

PATIENT
  Age: 8 Year
  Sex: Female

DRUGS (3)
  1. SABRIL [Suspect]
     Indication: EPILEPSY
  2. LUPRON DEPOT-PED [Suspect]
     Indication: PRECOCIOUS PUBERTY
     Route: 030
     Dates: start: 20101122, end: 20120114
  3. SABRIL [Suspect]
     Indication: COMPLEX PARTIAL SEIZURES
     Dosage: DAILY: 3000MG (1500MG, TWICE A DAY)
     Dates: start: 20110121, end: 20120114

REACTIONS (1)
  - DEATH [None]
